FAERS Safety Report 12012565 (Version 2)
Quarter: 2016Q1

REPORT INFORMATION
  Report Type: Report from Study
  Country: SG (occurrence: SG)
  Receive Date: 20160205
  Receipt Date: 20160315
  Transmission Date: 20160526
  Serious: Yes (Death, Hospitalization)
  Sender: FDA-Public Use
  Company Number: SG-009507513-1512SGP008375

PATIENT
  Age: 83 Year
  Sex: Female
  Weight: 40 kg

DRUGS (6)
  1. NEOGOBION [Concomitant]
     Indication: ROUTINE HEALTH MAINTENANCE
     Dosage: 1 CAPSULE, QD
     Route: 048
     Dates: start: 20150625
  2. PEMBROLIZUMAB. [Suspect]
     Active Substance: PEMBROLIZUMAB
     Indication: TRANSITIONAL CELL CANCER OF THE RENAL PELVIS AND URETER
     Dosage: 200 MG, Q3W
     Route: 042
     Dates: start: 20151111, end: 20151111
  3. PEMBROLIZUMAB. [Suspect]
     Active Substance: PEMBROLIZUMAB
     Dosage: 200 MG, Q3W
     Route: 042
     Dates: start: 20151203, end: 20151203
  4. AMLODIPINE [Concomitant]
     Active Substance: AMLODIPINE BESYLATE
     Indication: HYPERTENSION
     Dosage: 5 MG, QD
     Route: 048
     Dates: start: 20150622
  5. LACTULOSE. [Concomitant]
     Active Substance: LACTULOSE
     Indication: CONSTIPATION
     Dosage: TOTAL DAILY DOSE: 10ML,  PRN
     Route: 048
     Dates: start: 20111020
  6. SENNOSIDES. [Concomitant]
     Active Substance: SENNOSIDES
     Indication: CONSTIPATION
     Dosage: TOTAL DAILY DOSE: 7.5 MG, PRN
     Route: 048
     Dates: start: 20150622

REACTIONS (5)
  - Hepatitis [Recovered/Resolved]
  - Thyroiditis [Not Recovered/Not Resolved]
  - Myositis [Fatal]
  - Pneumonia [Not Recovered/Not Resolved]
  - Myocarditis [Recovered/Resolved with Sequelae]

NARRATIVE: CASE EVENT DATE: 20151203
